FAERS Safety Report 10068514 (Version 2)
Quarter: 2014Q2

REPORT INFORMATION
  Report Type: Spontaneous
  Country: FR (occurrence: FR)
  Receive Date: 20140409
  Receipt Date: 20140423
  Transmission Date: 20141212
  Serious: Yes (Hospitalization, Other)
  Sender: FDA-Public Use
  Company Number: FR-ASTRAZENECA-2014SE24125

PATIENT
  Age: 33 Year
  Sex: Female

DRUGS (4)
  1. XEROQUEL [Suspect]
     Indication: SCHIZOPHRENIA
     Route: 048
     Dates: start: 201207
  2. XEROQUEL [Suspect]
     Indication: SCHIZOPHRENIA
     Route: 048
  3. ANAFRANIL [Concomitant]
  4. LYSANXIA [Concomitant]
     Route: 048

REACTIONS (3)
  - Pulmonary embolism [Recovered/Resolved]
  - Diabetes mellitus [Unknown]
  - Off label use [Unknown]
